FAERS Safety Report 5893704-5 (Version None)
Quarter: 2008Q3

REPORT INFORMATION
  Report Type: 
  Country: None (occurrence: None)
  Receive Date: 20080918
  Receipt Date: 20080908
  Transmission Date: 20090109
  Serious: Yes (Other)
  Sender: FDA-Public Use
  Company Number: 2008AP002251

PATIENT
  Age: 71 Year
  Sex: Male

DRUGS (6)
  1. PRAVASTATIN [Suspect]
     Indication: HYPERCHOLESTEROLAEMIA
     Dosage: 1 DF; QD PO
     Route: 048
     Dates: start: 20080623, end: 20080711
  2. CHLORPHENIRAMINE MALEATE [Concomitant]
  3. FLOXACILLIN SODIUM [Concomitant]
  4. PENICILLIN [Concomitant]
  5. SIMVASTATIN [Concomitant]
  6. PRAVASTATIN [Concomitant]

REACTIONS (5)
  - DIZZINESS [None]
  - MYALGIA [None]
  - NAUSEA [None]
  - PAIN [None]
  - SWELLING FACE [None]
